FAERS Safety Report 23040829 (Version 1)
Quarter: 2023Q4

REPORT INFORMATION
  Report Type: Spontaneous
  Country: US (occurrence: US)
  Receive Date: 20231006
  Receipt Date: 20231006
  Transmission Date: 20240110
  Serious: No
  Sender: FDA-Public Use
  Company Number: US-JUBILANT CADISTA PHARMACEUTICALS INC.-2023JUB00208

PATIENT
  Age: 81 Year
  Sex: Female
  Weight: 70.295 kg

DRUGS (10)
  1. PREDNISONE [Suspect]
     Active Substance: PREDNISONE
     Indication: Pneumonia viral
     Dosage: LIGHTER DOSE, 1X/DAY
     Route: 048
     Dates: start: 20230414, end: 2023
  2. PREDNISONE [Suspect]
     Active Substance: PREDNISONE
     Dosage: 40 MG, 2X/DAY
     Route: 048
     Dates: start: 20230502, end: 20230506
  3. PREDNISONE [Suspect]
     Active Substance: PREDNISONE
     Dosage: 30 MG, 2X/DAY
     Route: 048
     Dates: start: 20230507, end: 20230511
  4. PREDNISONE [Suspect]
     Active Substance: PREDNISONE
     Dosage: 20 MG, 2X/DAY
     Route: 048
     Dates: start: 20230512, end: 20230516
  5. PREDNISONE [Suspect]
     Active Substance: PREDNISONE
     Dosage: 10 MG, 2X/DAY
     Route: 048
     Dates: start: 20230517, end: 20230521
  6. PREDNISONE [Suspect]
     Active Substance: PREDNISONE
  7. DOXYCYCLINE [Concomitant]
     Active Substance: DOXYCYCLINE
  8. NEBIVOLOL [Concomitant]
     Active Substance: NEBIVOLOL
  9. DELSYM 12 HOUR COUGH SUPPRESSANT [Concomitant]
     Dosage: AT NIGHT
  10. MUCINEX [Concomitant]
     Active Substance: GUAIFENESIN
     Dosage: UNK

REACTIONS (2)
  - Disturbance in social behaviour [Not Recovered/Not Resolved]
  - Drug ineffective for unapproved indication [Recovered/Resolved]

NARRATIVE: CASE EVENT DATE: 20230414
